FAERS Safety Report 19933580 (Version 1)
Quarter: 2021Q4

REPORT INFORMATION
  Report Type: Spontaneous
  Country: DE (occurrence: DE)
  Receive Date: 20211008
  Receipt Date: 20211008
  Transmission Date: 20220303
  Serious: Yes (Hospitalization, Congenital Anomaly, Other)
  Sender: FDA-Public Use
  Company Number: DE-EMBRYOTOX-202006895

PATIENT
  Age: 1 Day
  Sex: Male
  Weight: 3.1 kg

DRUGS (3)
  1. SERTRALINE [Suspect]
     Active Substance: SERTRALINE HYDROCHLORIDE
     Indication: Depression
     Dosage: 150 MILLIGRAM, QD
     Route: 064
  2. PROMETHAZINE [Suspect]
     Active Substance: PROMETHAZINE HYDROCHLORIDE
     Indication: Panic attack
     Dosage: 150 [MG/D ]/ 5 X 30 MG DAILY, 5 SEPARATED DOSES
     Route: 064
  3. ENOXAPARIN SODIUM [Concomitant]
     Active Substance: ENOXAPARIN SODIUM
     Indication: Factor V deficiency
     Dosage: 40 MILLIGRAM, QD
     Route: 064

REACTIONS (9)
  - Hypermetropia [Not Recovered/Not Resolved]
  - Agitation neonatal [Recovered/Resolved]
  - Strabismus [Not Recovered/Not Resolved]
  - Respiratory disorder neonatal [Recovered/Resolved]
  - Congenital megaureter [Unknown]
  - Tonic convulsion [Unknown]
  - Cryptorchism [Unknown]
  - Hypertonia neonatal [Unknown]
  - Foetal exposure during pregnancy [Recovered/Resolved]

NARRATIVE: CASE EVENT DATE: 20200531
